FAERS Safety Report 24642144 (Version 1)
Quarter: 2024Q4

REPORT INFORMATION
  Report Type: Spontaneous
  Country: US (occurrence: None)
  Receive Date: 20241119
  Receipt Date: 20241119
  Transmission Date: 20250114
  Serious: Yes (Hospitalization, Other)
  Sender: Public
  Company Number: None

PATIENT
  Age: 3 Year
  Sex: Male
  Weight: 18 kg

DRUGS (3)
  1. MIRALAX [Suspect]
     Active Substance: POLYETHYLENE GLYCOL 3350
     Indication: Constipation
     Dosage: FREQUENCY : DAILY;?
     Route: 048
     Dates: start: 20240201, end: 20241115
  2. CLONIDINE [Concomitant]
  3. MELATONIN [Concomitant]

REACTIONS (6)
  - Behaviour disorder [None]
  - Conversion disorder [None]
  - Crying [None]
  - Insomnia [None]
  - Pressure of speech [None]
  - Eating disorder [None]
